FAERS Safety Report 25081367 (Version 1)
Quarter: 2025Q1

REPORT INFORMATION
  Report Type: Spontaneous
  Country: US (occurrence: US)
  Receive Date: 20250316
  Receipt Date: 20250316
  Transmission Date: 20250409
  Serious: No
  Sender: SANOFI AVENTIS
  Company Number: US-SA-2025SA074791

PATIENT
  Age: 27 Year
  Sex: Male
  Weight: 49.09 kg

DRUGS (4)
  1. ALPROLIX [Suspect]
     Active Substance: EFTRENONACOG ALFA
     Indication: Factor IX deficiency
     Dosage: INFUSE 5130 UNITS (4617-5643) SLOW IV PUSH EVERY 10 DAYS
     Route: 042
     Dates: start: 202404
  2. ALPROLIX [Suspect]
     Active Substance: EFTRENONACOG ALFA
     Indication: Factor IX deficiency
     Dosage: INFUSE 5130 UNITS (4617-5643) SLOW IV PUSH EVERY 10 DAYS
     Route: 042
     Dates: start: 202404
  3. ALPROLIX [Suspect]
     Active Substance: EFTRENONACOG ALFA
     Route: 042
     Dates: start: 202404
  4. ALPROLIX [Suspect]
     Active Substance: EFTRENONACOG ALFA
     Route: 042
     Dates: start: 202404

REACTIONS (2)
  - Weight increased [Unknown]
  - Haematuria [Unknown]

NARRATIVE: CASE EVENT DATE: 20250225
